FAERS Safety Report 8365782-5 (Version None)
Quarter: 2012Q2

REPORT INFORMATION
  Report Type: 
  Country: None (occurrence: None)
  Receive Date: 20120517
  Receipt Date: 20120511
  Transmission Date: 20120825
  Serious: Yes (Hospitalization)
  Sender: FDA-Public Use
  Company Number: US-AMGEN-USASP2012029894

PATIENT
  Age: 48 Year
  Sex: Male

DRUGS (1)
  1. ENBREL [Suspect]
     Indication: PSORIATIC ARTHROPATHY
     Dosage: 50 MG, QWK
     Dates: start: 20010501, end: 20120307

REACTIONS (5)
  - MUSCULOSKELETAL STIFFNESS [None]
  - HIP ARTHROPLASTY [None]
  - PAIN [None]
  - ARTHROPATHY [None]
  - ARTHRALGIA [None]
